FAERS Safety Report 7028013-4 (Version None)
Quarter: 2010Q3

REPORT INFORMATION
  Report Type: 
  Country: None (occurrence: None)
  Receive Date: 20100830
  Receipt Date: 20100819
  Transmission Date: 20110219
  Serious: Yes (Other)
  Sender: FDA-Public Use
  Company Number: AECAN201000271

PATIENT

DRUGS (1)
  1. PLASBUMIN [Suspect]
     Indication: PRODUCT USED FOR UNKNOWN INDICATION
     Dosage: 25 GM; 1X; IV
     Route: 042

REACTIONS (2)
  - NONSPECIFIC REACTION [None]
  - PRODUCT CONTAMINATION MICROBIAL [None]
